FAERS Safety Report 7327882-8 (Version None)
Quarter: 2011Q1

REPORT INFORMATION
  Report Type: 
  Country: None (occurrence: None)
  Receive Date: 20110303
  Receipt Date: 20110119
  Transmission Date: 20110831
  Serious: Yes (Other)
  Sender: FDA-Public Use
  Company Number: BR-US-EMD SERONO, INC.-7038747

PATIENT
  Sex: Female

DRUGS (7)
  1. CONTRACEPTION [Suspect]
     Indication: CONTRACEPTION
  2. DYPIRONE (DIPYRONE) [Concomitant]
  3. SERTRALINE [Concomitant]
  4. MANIPULATED FORMULATION WITH PHOSPHORUM [Concomitant]
  5. ANSITEC [Concomitant]
  6. REBIF [Suspect]
     Indication: RELAPSING-REMITTING MULTIPLE SCLEROSIS
     Dates: start: 20090121
  7. CARDIZEM [Concomitant]

REACTIONS (4)
  - URINARY TRACT INFECTION [None]
  - INJECTION SITE ERYTHEMA [None]
  - THROMBOPHLEBITIS [None]
  - THROMBOPHLEBITIS SUPERFICIAL [None]
